FAERS Safety Report 20873015 (Version 8)
Quarter: 2022Q4

REPORT INFORMATION
  Report Type: Spontaneous
  Country: IN (occurrence: IN)
  Receive Date: 20220525
  Receipt Date: 20221222
  Transmission Date: 20230113
  Serious: No
  Sender: FDA-Public Use
  Company Number: IN-PFIZER INC-2021608280

PATIENT
  Age: 48 Year
  Sex: Female

DRUGS (4)
  1. PALBOCICLIB [Suspect]
     Active Substance: PALBOCICLIB
     Indication: Breast cancer metastatic
     Dosage: 125 MG, 1X/DAY
     Route: 048
     Dates: start: 20210325
  2. LETROZOLE [Concomitant]
     Active Substance: LETROZOLE
     Dosage: 2.5 MG, 1X/DAY
  3. ZA [Concomitant]
     Dosage: UNK
  4. CALCIUM CARBONATE\CHOLECALCIFEROL [Concomitant]
     Active Substance: CALCIUM CARBONATE\CHOLECALCIFEROL
     Dosage: UNK UNK, 1X/DAY

REACTIONS (21)
  - Monocyte percentage increased [Unknown]
  - Malaise [Recovered/Resolved]
  - Vomiting [Recovered/Resolved]
  - Diarrhoea [Recovered/Resolved]
  - Rash [Unknown]
  - White blood cell count decreased [Unknown]
  - Haemoglobin decreased [Unknown]
  - Platelet count decreased [Unknown]
  - Red blood cell count decreased [Unknown]
  - Blood pressure increased [Unknown]
  - Heart rate increased [Unknown]
  - Neutrophil percentage decreased [Unknown]
  - Body temperature decreased [Unknown]
  - Mean platelet volume increased [Unknown]
  - Neutrophil count decreased [Unknown]
  - Haematocrit decreased [Unknown]
  - Mean cell haemoglobin increased [Unknown]
  - Red cell distribution width increased [Unknown]
  - Osteoporosis [Unknown]
  - Haematocrit increased [Unknown]
  - Basophil percentage increased [Unknown]

NARRATIVE: CASE EVENT DATE: 20211018
